FAERS Safety Report 20510732 (Version 1)
Quarter: 2022Q1

REPORT INFORMATION
  Report Type: Spontaneous
  Country: US (occurrence: US)
  Receive Date: 20220224
  Receipt Date: 20220224
  Transmission Date: 20220424
  Serious: No
  Sender: FDA-Public Use
  Company Number: US-MACROGENICS-2021000322

PATIENT
  Sex: Female

DRUGS (1)
  1. MARGENZA [Suspect]
     Active Substance: MARGETUXIMAB-CMKB
     Indication: Product used for unknown indication
     Route: 065

REACTIONS (1)
  - Infusion related reaction [Not Recovered/Not Resolved]
